FAERS Safety Report 6504732-0 (Version None)
Quarter: 2009Q4

REPORT INFORMATION
  Report Type: 
  Country: None (occurrence: None)
  Receive Date: 20091218
  Receipt Date: 20091208
  Transmission Date: 20100525
  Serious: Yes (Other)
  Sender: FDA-Public Use
  Company Number: CA-BAYER-200942072NA

PATIENT
  Sex: Male

DRUGS (2)
  1. ADALAT CC [Suspect]
     Indication: BLOOD PRESSURE ABNORMAL
  2. ADALAT CC [Suspect]

REACTIONS (3)
  - BLINDNESS [None]
  - EYE HAEMORRHAGE [None]
  - VISION BLURRED [None]
